FAERS Safety Report 10451127 (Version 1)
Quarter: 2014Q3

REPORT INFORMATION
  Report Type: Spontaneous
  Country: US (occurrence: US)
  Receive Date: 20140912
  Receipt Date: 20140912
  Transmission Date: 20150326
  Serious: Yes (Hospitalization)
  Sender: FDA-Public Use
  Company Number: US-ELI_LILLY_AND_COMPANY-US201409003644

PATIENT
  Age: 90 Year
  Sex: Female

DRUGS (7)
  1. PREDNISONE. [Suspect]
     Active Substance: PREDNISONE
     Indication: PRODUCT USED FOR UNKNOWN INDICATION
     Route: 065
  2. FORTEO [Suspect]
     Active Substance: TERIPARATIDE
     Indication: OSTEOPOROSIS
     Dosage: UNK, QD
     Dates: start: 200610, end: 200811
  3. RECLAST [Suspect]
     Active Substance: ZOLEDRONIC ACID
     Indication: PRODUCT USED FOR UNKNOWN INDICATION
     Dosage: UNK
     Route: 065
     Dates: start: 200909
  4. EXELON [Concomitant]
     Active Substance: RIVASTIGMINE TARTRATE
  5. ESTRACE [Concomitant]
     Active Substance: ESTRADIOL
  6. NAMENDA [Concomitant]
     Active Substance: MEMANTINE HYDROCHLORIDE
     Indication: DEMENTIA ALZHEIMER^S TYPE
  7. METROGEL [Concomitant]
     Active Substance: METRONIDAZOLE
     Dosage: UNK

REACTIONS (8)
  - Bone density decreased [Unknown]
  - Glaucoma [Unknown]
  - Gait disturbance [Unknown]
  - Pain in extremity [Unknown]
  - Pain [Unknown]
  - Pelvic fracture [Recovered/Resolved]
  - Arteritis [Unknown]
  - Headache [Unknown]

NARRATIVE: CASE EVENT DATE: 201402
